FAERS Safety Report 24855513 (Version 1)
Quarter: 2025Q1

REPORT INFORMATION
  Report Type: Report from Study
  Country: CN (occurrence: CN)
  Receive Date: 20250117
  Receipt Date: 20250117
  Transmission Date: 20250408
  Serious: Yes (Other)
  Sender: ROCHE
  Company Number: CN-ROCHE-10000178506

PATIENT
  Age: 78 Year
  Sex: Male
  Weight: 81 kg

DRUGS (34)
  1. POLATUZUMAB VEDOTIN [Suspect]
     Active Substance: POLATUZUMAB VEDOTIN
     Indication: Diffuse large B-cell lymphoma
     Route: 042
     Dates: start: 20230907, end: 20230907
  2. POLATUZUMAB VEDOTIN [Suspect]
     Active Substance: POLATUZUMAB VEDOTIN
  3. RITUXIMAB [Suspect]
     Active Substance: RITUXIMAB
     Indication: Diffuse large B-cell lymphoma
     Route: 042
     Dates: start: 20230904, end: 20230904
  4. RITUXIMAB [Suspect]
     Active Substance: RITUXIMAB
  5. GEMCITABINE [Suspect]
     Active Substance: GEMCITABINE
     Indication: Diffuse large B-cell lymphoma
     Route: 042
     Dates: start: 20230907, end: 20230907
  6. GEMCITABINE [Suspect]
     Active Substance: GEMCITABINE
  7. CISPLATIN [Suspect]
     Active Substance: CISPLATIN
     Indication: Diffuse large B-cell lymphoma
     Route: 042
     Dates: start: 20230907, end: 20230907
  8. CISPLATIN [Suspect]
     Active Substance: CISPLATIN
  9. DEXAMETHASONE [Suspect]
     Active Substance: DEXAMETHASONE
     Indication: Diffuse large B-cell lymphoma
     Route: 042
     Dates: start: 20230907, end: 20230910
  10. DEXAMETHASONE [Suspect]
     Active Substance: DEXAMETHASONE
  11. Sacubitril Valsartan Sodium Tablets [Concomitant]
     Indication: Prophylaxis
     Route: 048
     Dates: start: 20230901
  12. RIVAROXABAN [Concomitant]
     Active Substance: RIVAROXABAN
     Indication: Prophylaxis
     Route: 048
     Dates: start: 20230901
  13. Entecavir Capsules [Concomitant]
     Indication: Prophylaxis
     Route: 048
     Dates: start: 20230901, end: 20230908
  14. Entecavir Capsules [Concomitant]
     Route: 048
     Dates: start: 20230926, end: 20230928
  15. Rabeprazole Sodium Enteric Capsules [Concomitant]
     Indication: Prophylaxis
     Route: 048
     Dates: start: 20230901, end: 20230908
  16. Rabeprazole Sodium Enteric Capsules [Concomitant]
     Route: 048
     Dates: start: 20230926, end: 20230928
  17. Tamsulosin Hydrochloride Sustained Release Capsules [Concomitant]
     Indication: Prophylaxis
     Route: 048
     Dates: start: 20230901, end: 20230908
  18. Tamsulosin Hydrochloride Sustained Release Capsules [Concomitant]
     Route: 048
     Dates: start: 20230926, end: 20230928
  19. Calcium Carbonate and Vitamin D3 Tablets [Concomitant]
     Indication: Prophylaxis
     Dosage: DRUG DOSE FIRST ADMINISTERED IS 1 TABLET
     Route: 048
     Dates: start: 20230831, end: 20230908
  20. Calcium Carbonate and Vitamin D3 Tablets [Concomitant]
     Dosage: DRUG DOSE FIRST ADMINISTERED IS 1 TABLET
     Route: 048
     Dates: start: 20230926, end: 20230928
  21. Paracetamol Sustained Release Tablets [Concomitant]
     Indication: Prophylaxis
     Route: 048
     Dates: start: 20230904, end: 20230905
  22. Paracetamol Sustained Release Tablets [Concomitant]
     Route: 048
     Dates: start: 20230926, end: 20230927
  23. DIPHENHYDRAMINE HYDROCHLORIDE [Concomitant]
     Active Substance: DIPHENHYDRAMINE HYDROCHLORIDE
     Indication: Prophylaxis
     Route: 030
     Dates: start: 20230905, end: 20230905
  24. DIPHENHYDRAMINE HYDROCHLORIDE [Concomitant]
     Active Substance: DIPHENHYDRAMINE HYDROCHLORIDE
     Route: 030
     Dates: start: 20230926, end: 20230927
  25. POTASSIUM CHLORIDE [Concomitant]
     Active Substance: POTASSIUM CHLORIDE
     Indication: Prophylaxis
     Route: 042
     Dates: start: 20230906, end: 20230907
  26. POTASSIUM CHLORIDE [Concomitant]
     Active Substance: POTASSIUM CHLORIDE
     Route: 042
     Dates: start: 20230926, end: 20230927
  27. POTASSIUM CHLORIDE [Concomitant]
     Active Substance: POTASSIUM CHLORIDE
     Route: 042
     Dates: start: 20230926, end: 20230926
  28. Ondansetron Hydrochloride Injection [Concomitant]
     Indication: Prophylaxis
     Route: 042
     Dates: start: 20230906, end: 20230907
  29. Ondansetron Hydrochloride Injection [Concomitant]
     Route: 042
     Dates: start: 20230926, end: 20230927
  30. ATORVASTATIN CALCIUM [Concomitant]
     Active Substance: ATORVASTATIN CALCIUM
     Indication: Prophylaxis
     Route: 048
     Dates: start: 20230926, end: 20230928
  31. SODIUM BICARBONATE [Concomitant]
     Active Substance: SODIUM BICARBONATE
     Route: 048
     Dates: start: 20230926, end: 20230928
  32. Torasemide Injection [Concomitant]
     Indication: Prophylaxis
     Route: 042
     Dates: start: 20230926, end: 20230926
  33. Beryl (rivaroxaban) [Concomitant]
     Indication: Prophylaxis
     Route: 048
     Dates: start: 20230926, end: 20230928
  34. Lipitor (Atorvastatin calcium tablets) [Concomitant]
     Indication: Prophylaxis
     Route: 048
     Dates: start: 20230831, end: 20230908

REACTIONS (1)
  - Neutrophil count decreased [Recovered/Resolved]

NARRATIVE: CASE EVENT DATE: 20230911
